FAERS Safety Report 5487181-6 (Version None)
Quarter: 2007Q4

REPORT INFORMATION
  Report Type: 
  Country: None (occurrence: None)
  Receive Date: 20071016
  Receipt Date: 20071001
  Transmission Date: 20080405
  Serious: Yes (Life-Threatening, Hospitalization)
  Sender: FDA-Public Use
  Company Number: US-GENENTECH-249477

PATIENT
  Sex: Male

DRUGS (4)
  1. BEVACIZUMAB [Suspect]
     Indication: NON-SMALL CELL LUNG CANCER
     Dosage: 15 MG/KG, Q21D
     Route: 042
     Dates: start: 20070501
  2. ERBITUX [Suspect]
     Indication: NON-SMALL CELL LUNG CANCER
     Dosage: 250 MG/M2, 1/WEEK
     Route: 042
     Dates: start: 20070501
  3. TAXOL [Suspect]
     Indication: NON-SMALL CELL LUNG CANCER
     Dosage: 200 MG/M2, Q21D
     Route: 042
     Dates: start: 20070501
  4. CARBOPLATIN [Suspect]
     Indication: NON-SMALL CELL LUNG CANCER
     Dosage: UNK, Q21D
     Route: 042
     Dates: start: 20070501

REACTIONS (6)
  - CHILLS [None]
  - DISEASE PROGRESSION [None]
  - MUSCULAR WEAKNESS [None]
  - NEUTROPENIC INFECTION [None]
  - NEUTROPHIL COUNT DECREASED [None]
  - PNEUMONIA [None]
